FAERS Safety Report 21523756 (Version 1)
Quarter: 2022Q4

REPORT INFORMATION
  Report Type: Report from Study
  Country: FR (occurrence: FR)
  Receive Date: 20221029
  Receipt Date: 20221029
  Transmission Date: 20230112
  Serious: Yes (Hospitalization, Other)
  Sender: FDA-Public Use
  Company Number: FR-HRARD-202000803

PATIENT
  Age: 53 Year
  Sex: Male
  Weight: 82 kg

DRUGS (26)
  1. METFORMIN [Suspect]
     Active Substance: METFORMIN HYDROCHLORIDE
     Indication: Diabetes mellitus
     Dosage: UNIT DOSE : 2 G , FREQUENCY TIME : 1 DAY
  2. KETOCONAZOLE [Interacting]
     Active Substance: KETOCONAZOLE
     Indication: Cushing^s syndrome
     Dosage: UNIT DOSE : 200 MG , FREQUENCY TIME : 1 DAY
     Dates: start: 20200909, end: 20200909
  3. KETOCONAZOLE [Interacting]
     Active Substance: KETOCONAZOLE
     Dosage: UNIT DOSE : 1000 MG , FREQUENCY TIME : 1 DAY
     Dates: start: 20200815, end: 20200819
  4. KETOCONAZOLE [Interacting]
     Active Substance: KETOCONAZOLE
     Dosage: UNIT DOSE : 600 MG , FREQUENCY TIME : 1 DAY
     Dates: start: 20200724, end: 20200814
  5. KETOCONAZOLE [Interacting]
     Active Substance: KETOCONAZOLE
     Dosage: UNIT DOSE : 600 MG , FREQUENCY TIME : 1 DAY
     Dates: start: 20200911, end: 20200915
  6. KETOCONAZOLE [Interacting]
     Active Substance: KETOCONAZOLE
     Dosage: UNIT DOSE : 800 MG , FREQUENCY TIME : 1 DAY
     Dates: start: 20200922, end: 20201014
  7. KETOCONAZOLE [Interacting]
     Active Substance: KETOCONAZOLE
     Dosage: UNIT DOSE : 400 MG , FREQUENCY TIME : 1 DAY
     Dates: start: 20200910, end: 20200910
  8. KETOCONAZOLE [Interacting]
     Active Substance: KETOCONAZOLE
     Dosage: UNIT DOSE : 1000 MG , FREQUENCY TIME : 1 DAY
     Dates: start: 20200916, end: 20200921
  9. FUROSEMIDE [Suspect]
     Active Substance: FUROSEMIDE
     Indication: Cardiac failure
     Dosage: UNIT DOSE : 40 MG , FREQUENCY TIME : 1 DAY
  10. POTASSIUM CHLORIDE [Suspect]
     Active Substance: POTASSIUM CHLORIDE
     Indication: Hypokalaemia
     Route: 065
  11. ALDACTONE [Suspect]
     Active Substance: SPIRONOLACTONE
     Indication: Hypertension
     Dosage: 100 MILLIGRAM DAILY; 100 MG, QD
  12. HYDROCHLOROTHIAZIDE\NEBIVOLOL HYDROCHLORIDE [Suspect]
     Active Substance: HYDROCHLOROTHIAZIDE\NEBIVOLOL HYDROCHLORIDE
     Indication: Hypertension
     Dosage: UNIT DOSE : 5 MG , FREQUENCY TIME : 1 DAY
  13. COVERAM [Suspect]
     Active Substance: AMLODIPINE\PERINDOPRIL
     Indication: Hypertension
     Dosage: COVERAM 10/10 , UNIT DOSE : 8 MG , FREQUENCY TIME : 1 DAY
  14. INSULIN GLARGINE [Concomitant]
     Active Substance: INSULIN GLARGINE
     Indication: Diabetes mellitus
     Dosage: UNIT DOSE : 20 IU, FREQUENCY TIME : 1 DAY
  15. PERINDOPRIL ARGININE [Concomitant]
     Active Substance: PERINDOPRIL ARGININE
     Indication: Hypertension
     Dosage: 8 MILLIGRAM DAILY; 8 MG, QD
  16. PERINDOPRIL [Concomitant]
     Active Substance: PERINDOPRIL
     Indication: Hypertension
     Dosage: UNIT DOSE : 8 MG , FREQUENCY TIME : 1 DAY
  17. NOVORAPID [Concomitant]
     Active Substance: INSULIN ASPART
     Indication: Diabetes mellitus
  18. FERROUS SULFATE [Concomitant]
     Active Substance: FERROUS SULFATE
     Indication: Anaemia
  19. RILMENIDINE PHOSPHATE [Concomitant]
     Active Substance: RILMENIDINE PHOSPHATE
     Indication: Hypertension
     Dosage: UNIT DOSE : 1 MG , FREQUENCY TIME : 1 DAY
  20. JANUVIA [Concomitant]
     Active Substance: SITAGLIPTIN PHOSPHATE
     Indication: Diabetes mellitus
     Dosage: UNIT DOSE : 100 MG , FREQUENCY TIME : 1 DAY
  21. TAHOR [Interacting]
     Active Substance: ATORVASTATIN CALCIUM
     Indication: Dyslipidaemia
     Dosage: UNIT DOSE : 10 MG , FREQUENCY TIME : 1 DAY
  22. OSILODROSTAT [Interacting]
     Active Substance: OSILODROSTAT
     Indication: Cushing^s syndrome
     Dosage: UNIT DOSE : 30 MG , FREQUENCY TIME : 1 DAY
     Dates: start: 20200903
  23. AMLODIPINE BESYLATE [Concomitant]
     Active Substance: AMLODIPINE BESYLATE
     Indication: Hypertension
     Dosage: UNIT DOSE : 5 MG , FREQUENCY TIME : 1 DAY
  24. PANTOPRAZOLE [Concomitant]
     Active Substance: PANTOPRAZOLE
     Indication: Prophylaxis
     Dosage: UNIT DOSE : 40 MG , FREQUENCY TIME : 1 DAY
  25. CHOLECALCIFEROL [Concomitant]
     Active Substance: CHOLECALCIFEROL
     Indication: Vitamin D deficiency
  26. KARDEGIC [Concomitant]
     Active Substance: ASPIRIN DL-LYSINE
     Indication: Cardiac failure
     Dosage: UNIT DOSE : 75 MG , FREQUENCY TIME : 1 DAY

REACTIONS (6)
  - Hypokalaemia [Recovered/Resolved]
  - Hyperkalaemia [Recovered/Resolved]
  - Acute kidney injury [Recovered/Resolved]
  - Drug ineffective [Recovered/Resolved]
  - Labelled drug-drug interaction medication error [Unknown]
  - Drug interaction [Unknown]

NARRATIVE: CASE EVENT DATE: 20200724
